FAERS Safety Report 18427209 (Version 3)
Quarter: 2024Q1

REPORT INFORMATION
  Report Type: Spontaneous
  Country: US (occurrence: US)
  Receive Date: 20201026
  Receipt Date: 20240311
  Transmission Date: 20240410
  Serious: No
  Sender: FDA-Public Use
  Company Number: US-PFIZER INC-2020411650

PATIENT
  Age: 77 Year
  Sex: Male
  Weight: 90.7 kg

DRUGS (1)
  1. XELJANZ [Suspect]
     Active Substance: TOFACITINIB CITRATE
     Indication: Rheumatoid arthritis
     Dosage: UNK

REACTIONS (3)
  - Hypoacusis [Unknown]
  - Movement disorder [Unknown]
  - Osteoarthritis [Unknown]
